FAERS Safety Report 11469258 (Version 3)
Quarter: 2015Q4

REPORT INFORMATION
  Report Type: Spontaneous
  Country: US (occurrence: US)
  Receive Date: 20150908
  Receipt Date: 20151023
  Transmission Date: 20160304
  Serious: No
  Sender: FDA-Public Use
  Company Number: US-GLAXOSMITHKLINE-US2015125622

PATIENT
  Sex: Male
  Weight: 81.18 kg

DRUGS (16)
  1. METFORMIN [Concomitant]
     Active Substance: METFORMIN HYDROCHLORIDE
  2. LEUKINE [Concomitant]
     Active Substance: SARGRAMOSTIM
  3. LOVENOX [Concomitant]
     Active Substance: ENOXAPARIN SODIUM
  4. XTANDI [Concomitant]
     Active Substance: ENZALUTAMIDE
  5. ZOFRAN [Concomitant]
     Active Substance: ONDANSETRON HYDROCHLORIDE
  6. ETHINYL ESTRADIOL [Concomitant]
     Active Substance: ETHINYL ESTRADIOL
  7. FINASTERIDE. [Concomitant]
     Active Substance: FINASTERIDE
  8. DEXAMETHASONE. [Concomitant]
     Active Substance: DEXAMETHASONE
  9. FIRMAGON [Concomitant]
     Active Substance: DEGARELIX ACETATE
  10. LIPITOR [Concomitant]
     Active Substance: ATORVASTATIN CALCIUM
  11. THALIDOMIDE [Concomitant]
     Active Substance: THALIDOMIDE
  12. AVODART [Suspect]
     Active Substance: DUTASTERIDE
     Indication: BENIGN PROSTATIC HYPERPLASIA
     Dosage: 0.5 MG, 1D
     Route: 048
     Dates: start: 201401
  13. DOCETAXEL. [Concomitant]
     Active Substance: DOCETAXEL
  14. CARBOPLATIN. [Concomitant]
     Active Substance: CARBOPLATIN
  15. EMCYT [Concomitant]
     Active Substance: ESTRAMUSTINE PHOSPHATE SODIUM
  16. PANTOPRAZOLE [Concomitant]
     Active Substance: PANTOPRAZOLE SODIUM

REACTIONS (2)
  - Diarrhoea [Unknown]
  - Medication residue present [Unknown]
